FAERS Safety Report 19920637 (Version 2)
Quarter: 2021Q4

REPORT INFORMATION
  Report Type: Spontaneous
  Country: US (occurrence: US)
  Receive Date: 20211005
  Receipt Date: 20211018
  Transmission Date: 20220303
  Serious: No
  Sender: FDA-Public Use
  Company Number: US-AMGEN-USASP2021151694

PATIENT
  Age: 28 Year
  Sex: Female

DRUGS (1)
  1. CORLANOR [Suspect]
     Active Substance: IVABRADINE HYDROCHLORIDE
     Indication: Postural orthostatic tachycardia syndrome
     Dosage: 2.5 MILLIGRAM, QD
     Route: 048

REACTIONS (5)
  - Photopsia [Unknown]
  - Bedridden [Unknown]
  - Blood pressure decreased [Unknown]
  - Pulse abnormal [Unknown]
  - Drug effective for unapproved indication [Unknown]

NARRATIVE: CASE EVENT DATE: 20200101
